FAERS Safety Report 12892195 (Version 1)
Quarter: 2016Q4

REPORT INFORMATION
  Report Type: Spontaneous
  Country: US (occurrence: US)
  Receive Date: 20161026
  Receipt Date: 20161026
  Transmission Date: 20170207
  Serious: Yes (Hospitalization)
  Sender: FDA-Public Use
  Company Number: None

PATIENT
  Age: 71 Year
  Sex: Female
  Weight: 58.11 kg

DRUGS (12)
  1. MIRALAX [Concomitant]
     Active Substance: POLYETHYLENE GLYCOL 3350
  2. INTERFERON GAMMA NOS [Suspect]
     Active Substance: INTERFERON GAMMA
     Indication: OVARIAN CANCER
     Dosage: 75MCG/M2 QOD SUB Q
     Route: 058
     Dates: start: 20160822, end: 20161019
  3. ZOFRAN [Concomitant]
     Active Substance: ONDANSETRON HYDROCHLORIDE
  4. COMPAZINE [Concomitant]
     Active Substance: PROCHLORPERAZINE MALEATE
  5. PRILOSEC [Concomitant]
     Active Substance: OMEPRAZOLE MAGNESIUM
  6. NIVOLUMAB [Suspect]
     Active Substance: NIVOLUMAB
     Indication: OVARIAN CANCER
     Dosage: 3MG/KG EVERY 2 WEEKS IV
     Route: 042
     Dates: start: 20160830, end: 20161011
  7. MVI [Concomitant]
     Active Substance: VITAMINS
  8. CALCIUM WITH VITAMIN D [Suspect]
     Active Substance: CALCIUM\VITAMIN D
  9. COLACE [Concomitant]
     Active Substance: DOCUSATE SODIUM
  10. TYLENOL [Concomitant]
     Active Substance: ACETAMINOPHEN
  11. PROBIOTIC [Concomitant]
     Active Substance: PROBIOTICS NOS
  12. MOTRIN [Concomitant]
     Active Substance: IBUPROFEN

REACTIONS (8)
  - Disease progression [None]
  - Ascites [None]
  - Hyponatraemia [None]
  - Hyperkalaemia [None]
  - Treatment failure [None]
  - Fatigue [None]
  - Asthenia [None]
  - Pain in extremity [None]

NARRATIVE: CASE EVENT DATE: 20161025
